FAERS Safety Report 9343980 (Version 6)
Quarter: 2014Q3

REPORT INFORMATION
  Report Type: Spontaneous
  Country: US (occurrence: US)
  Receive Date: 20130612
  Receipt Date: 20140714
  Transmission Date: 20150326
  Serious: Yes (Hospitalization, Other)
  Sender: FDA-Public Use
  Company Number: PHEH2004US014162

PATIENT
  Age: 55 Year
  Sex: Female
  Weight: 47.17 kg

DRUGS (12)
  1. AREDIA [Suspect]
     Active Substance: PAMIDRONATE DISODIUM
     Indication: PLASMA CELL MYELOMA
     Dosage: 90 MG, QMO
     Route: 042
     Dates: start: 20030130, end: 20040824
  2. ZOMETA [Suspect]
     Active Substance: ZOLEDRONIC ACID
     Indication: PLASMA CELL MYELOMA
     Dosage: UNK UKN, UNK
     Route: 042
  3. PROZAC [Concomitant]
     Active Substance: FLUOXETINE HYDROCHLORIDE
  4. MVI [Concomitant]
     Active Substance: VITAMINS
  5. ASA [Concomitant]
     Active Substance: ASPIRIN
     Dosage: 81 MG, QD
     Dates: end: 20040803
  6. VINCRISTINE + ADRIAMYCIN + DEXAMETHASONE [Concomitant]
     Indication: PLASMA CELL MYELOMA
  7. AUTOLOGOUS TRANSPLANTATION [Concomitant]
     Dates: start: 200305, end: 200305
  8. EFFEXOR XR [Concomitant]
     Active Substance: VENLAFAXINE HYDROCHLORIDE
     Dosage: 75 MG, QD
  9. ATENOLOL. [Concomitant]
     Active Substance: ATENOLOL
  10. LORCET [Concomitant]
     Active Substance: ACETAMINOPHEN\HYDROCODONE BITARTRATE
     Indication: PAIN
  11. SLOW-FE /UNK/ [Concomitant]
  12. PRAVASTATIN [Concomitant]
     Active Substance: PRAVASTATIN\PRAVASTATIN SODIUM

REACTIONS (104)
  - Osteonecrosis of jaw [Recovering/Resolving]
  - Inflammation [Unknown]
  - Plasmacytoma [Unknown]
  - Anaemia [Unknown]
  - Abdominal distension [Unknown]
  - Cervicitis human papilloma virus [Unknown]
  - Iritis [Recovering/Resolving]
  - Ocular hyperaemia [Recovering/Resolving]
  - Arteriosclerosis [Unknown]
  - Cataract [Unknown]
  - Intra-abdominal haemorrhage [Unknown]
  - Purulent discharge [Unknown]
  - Swelling [Unknown]
  - Weight decreased [Unknown]
  - Hypoxia [Recovered/Resolved]
  - Diarrhoea [Unknown]
  - Eye swelling [Recovering/Resolving]
  - Compression fracture [Unknown]
  - Scoliosis [Unknown]
  - Mitral valve incompetence [Unknown]
  - Tracheobronchitis [Unknown]
  - Lung hyperinflation [Unknown]
  - Abdominal pain [Unknown]
  - Postmenopausal haemorrhage [Unknown]
  - Pain [Recovered/Resolved]
  - Injury [Unknown]
  - Infection [Unknown]
  - Osteomyelitis acute [Unknown]
  - Osteolysis [Unknown]
  - Fungal infection [Unknown]
  - Cervical dysplasia [Unknown]
  - Gallbladder disorder [Unknown]
  - Carotid bruit [Unknown]
  - Cough [Unknown]
  - Haemorrhage [Unknown]
  - Post procedural complication [Unknown]
  - Fatigue [Unknown]
  - Eating disorder symptom [Recovering/Resolving]
  - Pathological fracture [Unknown]
  - Bloody discharge [Unknown]
  - Plasma cell myeloma recurrent [Unknown]
  - Herpes zoster [Unknown]
  - Metastatic neoplasm [Unknown]
  - Pain in extremity [Unknown]
  - Hypothyroidism [Unknown]
  - Skin lesion [Unknown]
  - Muscle spasms [Unknown]
  - Mental impairment [Unknown]
  - Impaired healing [Unknown]
  - Wound [Unknown]
  - Agitation [Recovered/Resolved]
  - Oral candidiasis [Unknown]
  - Nausea [Unknown]
  - Blood potassium decreased [Unknown]
  - Musculoskeletal stiffness [Unknown]
  - Vision blurred [Recovering/Resolving]
  - Colon adenoma [Unknown]
  - Intervertebral disc degeneration [Unknown]
  - Anxiety [Unknown]
  - Vitamin D deficiency [Unknown]
  - Metrorrhagia [Recovered/Resolved]
  - Seborrhoeic keratosis [Unknown]
  - Swelling face [Recovering/Resolving]
  - Tooth loss [Unknown]
  - Fistula [Unknown]
  - Wound abscess [Unknown]
  - Vomiting [Unknown]
  - Ophthalmic herpes zoster [Recovering/Resolving]
  - Diastolic dysfunction [Unknown]
  - Peripheral vascular disorder [Unknown]
  - Rhinitis [Unknown]
  - Nicotine dependence [Unknown]
  - Chest discomfort [Unknown]
  - Kyphosis [Unknown]
  - Neck deformity [Unknown]
  - Pollakiuria [Unknown]
  - Rash pruritic [Unknown]
  - Staphylococcal infection [Unknown]
  - Induration [Unknown]
  - Postoperative wound complication [Unknown]
  - Blood pressure decreased [Unknown]
  - Cervicitis [Unknown]
  - Oedema peripheral [Unknown]
  - Blood glucose increased [Unknown]
  - Deformity [Unknown]
  - Metaplasia [Unknown]
  - Osteopenia [Unknown]
  - Aortic arteriosclerosis [Unknown]
  - Aortic calcification [Unknown]
  - Wheezing [Unknown]
  - Respiratory tract infection [Recovered/Resolved]
  - Left ventricular hypertrophy [Unknown]
  - Chest pain [Unknown]
  - Eschar [Recovering/Resolving]
  - Bone disorder [Unknown]
  - Alpha haemolytic streptococcal infection [Unknown]
  - Confusional state [Unknown]
  - Haemorrhoids [Unknown]
  - Aortic valve disease [Unknown]
  - Tricuspid valve incompetence [Unknown]
  - Large intestine polyp [Unknown]
  - Flatulence [Unknown]
  - Hiatus hernia [Unknown]
  - Spinal osteoarthritis [Unknown]

NARRATIVE: CASE EVENT DATE: 20030224
